FAERS Safety Report 14901031 (Version 1)
Quarter: 2018Q2

REPORT INFORMATION
  Report Type: Spontaneous
  Country: US (occurrence: US)
  Receive Date: 20180516
  Receipt Date: 20180516
  Transmission Date: 20180711
  Serious: Yes (Death)
  Sender: FDA-Public Use
  Company Number: US-LEXICON PHARMACEUTICALS, INC-18-1606-00572

PATIENT
  Age: 74 Year
  Sex: Female

DRUGS (19)
  1. NORVASC [Concomitant]
     Active Substance: AMLODIPINE BESYLATE
  2. BENZOCAINE. [Concomitant]
     Active Substance: BENZOCAINE
  3. FIORICET [Concomitant]
     Active Substance: ACETAMINOPHEN\BUTALBITAL\CAFFEINE
  4. HYDROCORTISONE. [Concomitant]
     Active Substance: HYDROCORTISONE
  5. ROBAXIN [Concomitant]
     Active Substance: METHOCARBAMOL
  6. SANDOSTATIN [Concomitant]
     Active Substance: OCTREOTIDE ACETATE
  7. AVAPRO [Concomitant]
     Active Substance: IRBESARTAN
  8. LOMOTIL [Concomitant]
     Active Substance: ATROPINE SULFATE\DIPHENOXYLATE HYDROCHLORIDE
  9. ALEVE [Concomitant]
     Active Substance: NAPROXEN SODIUM
  10. ANUSOL-HC [Concomitant]
  11. CELEBREX [Concomitant]
     Active Substance: CELECOXIB
  12. FOLIC ACID. [Concomitant]
     Active Substance: FOLIC ACID
  13. QUESTRAN [Concomitant]
     Active Substance: CHOLESTYRAMINE
  14. LIPITOR [Concomitant]
     Active Substance: ATORVASTATIN CALCIUM
  15. LIDOCAINE. [Concomitant]
     Active Substance: LIDOCAINE
  16. TELOTRISTAT ETHYL [Suspect]
     Active Substance: TELOTRISTAT ETHYL
     Indication: CARCINOID SYNDROME
     Route: 048
     Dates: start: 20170708, end: 20180316
  17. CARDURA [Concomitant]
     Active Substance: DOXAZOSIN MESYLATE
  18. PRILOSEC [Concomitant]
     Active Substance: OMEPRAZOLE MAGNESIUM
  19. LASIX [Concomitant]
     Active Substance: FUROSEMIDE

REACTIONS (1)
  - Death [Fatal]

NARRATIVE: CASE EVENT DATE: 20180316
